FAERS Safety Report 10524479 (Version 1)
Quarter: 2014Q4

REPORT INFORMATION
  Report Type: Spontaneous
  Country: US (occurrence: None)
  Receive Date: 20141015
  Receipt Date: 20141015
  Transmission Date: 20150528
  Serious: Yes (Disabling, Other)
  Sender: FDA-Public Use
  Company Number: None

PATIENT
  Age: 54 Year
  Sex: Female
  Weight: 58.06 kg

DRUGS (1)
  1. DEXTROAMPHETAMINE [Suspect]
     Active Substance: DEXTROAMPHETAMINE
     Indication: ATTENTION DEFICIT/HYPERACTIVITY DISORDER
     Dosage: ONE ONCE DAILY TAKEN BY MOUTH

REACTIONS (5)
  - Hypomania [None]
  - Economic problem [None]
  - Loss of employment [None]
  - Homeless [None]
  - Legal problem [None]

NARRATIVE: CASE EVENT DATE: 20130830
